FAERS Safety Report 7501279-X (Version None)
Quarter: 2011Q2

REPORT INFORMATION
  Report Type: 
  Country: None (occurrence: None)
  Receive Date: 20110524
  Receipt Date: 20110523
  Transmission Date: 20111010
  Serious: Yes (Death)
  Sender: FDA-Public Use
  Company Number: GB-ABBOTT-11P-167-0715215-00

PATIENT
  Sex: Female

DRUGS (1)
  1. HUMIRA [Suspect]
     Indication: RHEUMATOID ARTHRITIS
     Route: 058
     Dates: start: 20060320, end: 20060712

REACTIONS (5)
  - SEPTIC SHOCK [None]
  - SKIN ULCER [None]
  - CEREBELLAR INFARCTION [None]
  - GASTROINTESTINAL HAEMORRHAGE [None]
  - ARTHRITIS BACTERIAL [None]
